FAERS Safety Report 9374841 (Version 1)
Quarter: 2013Q2

REPORT INFORMATION
  Report Type: Spontaneous
  Country: US (occurrence: US)
  Receive Date: 20130628
  Receipt Date: 20130628
  Transmission Date: 20140414
  Serious: No
  Sender: FDA-Public Use
  Company Number: US-GLAXOSMITHKLINE-A0994264A

PATIENT
  Age: 42 Year
  Sex: Female
  Weight: 66.4 kg

DRUGS (5)
  1. ZYBAN [Suspect]
     Indication: EX-TOBACCO USER
     Dates: start: 2004
  2. SINGULAIR [Concomitant]
  3. ADVAIR [Concomitant]
  4. METFORMIN [Concomitant]
  5. ZETIA [Concomitant]

REACTIONS (2)
  - Nausea [Recovered/Resolved]
  - Malaise [Unknown]
